FAERS Safety Report 11649960 (Version 1)
Quarter: 2015Q4

REPORT INFORMATION
  Report Type: Spontaneous
  Country: IN (occurrence: IN)
  Receive Date: 20151021
  Receipt Date: 20151021
  Transmission Date: 20160304
  Serious: Yes (Other)
  Sender: FDA-Public Use
  Company Number: PHHY2015IN134320

PATIENT
  Age: 28 Year
  Sex: Male

DRUGS (2)
  1. OLANZAPINE. [Suspect]
     Active Substance: OLANZAPINE
     Indication: NEUROLEPTIC MALIGNANT SYNDROME
     Dosage: 5 MG, UNK
     Route: 065
  2. FLUPENTIXOL [Suspect]
     Active Substance: FLUPENTIXOL
     Indication: NEUROLEPTIC MALIGNANT SYNDROME
     Dosage: 20 MG, UNK
     Route: 065

REACTIONS (3)
  - Encephalitis mumps [Recovered/Resolved]
  - Akathisia [Recovered/Resolved]
  - Parkinsonism [Unknown]
